FAERS Safety Report 23817019 (Version 1)
Quarter: 2024Q2

REPORT INFORMATION
  Report Type: Other
  Country: FR (occurrence: FR)
  Receive Date: 20240504
  Receipt Date: 20240504
  Transmission Date: 20240715
  Serious: Yes (Death)
  Sender: FDA-Public Use
  Company Number: None

PATIENT

DRUGS (23)
  1. BISOPROLOL [Suspect]
     Active Substance: BISOPROLOL\BISOPROLOL FUMARATE
     Indication: Product used for unknown indication
     Dosage: 1.25 MILLIGRAM, QD
     Route: 048
     Dates: start: 20230314, end: 20230330
  2. BISOPROLOL [Suspect]
     Active Substance: BISOPROLOL\BISOPROLOL FUMARATE
     Dosage: 2.5 MILLIGRAM, QD
     Route: 048
     Dates: start: 20230330, end: 20230427
  3. BISOPROLOL [Suspect]
     Active Substance: BISOPROLOL\BISOPROLOL FUMARATE
     Dosage: 5 MILLIGRAM, QD
     Route: 048
     Dates: start: 20230427
  4. PERINDOPRIL [Suspect]
     Active Substance: PERINDOPRIL
     Indication: Product used for unknown indication
     Dosage: 2 MILLIGRAM, QD
     Route: 065
     Dates: start: 20230314, end: 20230329
  5. PERINDOPRIL [Suspect]
     Active Substance: PERINDOPRIL
     Dosage: 4 MILLIGRAM, QD
     Route: 065
     Dates: start: 20230330
  6. ALPRAZOLAM [Suspect]
     Active Substance: ALPRAZOLAM
     Indication: Product used for unknown indication
     Dosage: 1 MILLIGRAM, QD
     Route: 048
     Dates: start: 20210212, end: 20210303
  7. ALPRAZOLAM [Suspect]
     Active Substance: ALPRAZOLAM
     Dosage: 1.5 MILLIGRAM, QD
     Route: 048
     Dates: start: 20210304, end: 20210424
  8. ALPRAZOLAM [Suspect]
     Active Substance: ALPRAZOLAM
     Dosage: 1.25 MILLIGRAM, QD
     Route: 048
     Dates: start: 20210425, end: 20210929
  9. ALPRAZOLAM [Suspect]
     Active Substance: ALPRAZOLAM
     Dosage: 1 MILLIGRAM, QD
     Route: 048
     Dates: start: 20210930
  10. FUROSEMIDE [Suspect]
     Active Substance: FUROSEMIDE
     Indication: Product used for unknown indication
     Dosage: 20 MILLIGRAM, QD
     Route: 065
     Dates: start: 20230314
  11. CYAMEMAZINE [Suspect]
     Active Substance: CYAMEMAZINE
     Indication: Antipsychotic therapy
     Dosage: 100 MILLIGRAM, QD
     Route: 048
     Dates: end: 20201008
  12. CYAMEMAZINE [Suspect]
     Active Substance: CYAMEMAZINE
     Dosage: 200 MILLIGRAM, QD
     Route: 048
     Dates: start: 20201008, end: 20210303
  13. CYAMEMAZINE [Suspect]
     Active Substance: CYAMEMAZINE
     Dosage: 300 MILLIGRAM, QD
     Route: 048
     Dates: start: 20210304, end: 20220929
  14. CYAMEMAZINE [Suspect]
     Active Substance: CYAMEMAZINE
     Dosage: 275 MILLIGRAM, QD
     Route: 048
     Dates: start: 20220930, end: 20230330
  15. CYAMEMAZINE [Suspect]
     Active Substance: CYAMEMAZINE
     Dosage: 200 MILLIGRAM, QD
     Route: 048
     Dates: start: 20230331
  16. DIAZEPAM [Suspect]
     Active Substance: DIAZEPAM
     Indication: Product used for unknown indication
     Dosage: 20 MILLIGRAM, QD
     Route: 048
     Dates: end: 20200923
  17. DIAZEPAM [Suspect]
     Active Substance: DIAZEPAM
     Dosage: 30 MILLIGRAM, QD
     Route: 048
     Dates: start: 20200924, end: 20210212
  18. NALMEFENE HYDROCHLORIDE DIHYDRATE [Suspect]
     Active Substance: NALMEFENE HYDROCHLORIDE DIHYDRATE
     Indication: Product used for unknown indication
     Dosage: 18 MILLIGRAM, QD
     Route: 065
  19. BRINTELLIX [Suspect]
     Active Substance: VORTIOXETINE HYDROBROMIDE
     Indication: Product used for unknown indication
     Dosage: 15 MILLIGRAM, QD
     Route: 048
     Dates: end: 20201230
  20. BRINTELLIX [Suspect]
     Active Substance: VORTIOXETINE HYDROBROMIDE
     Dosage: 40 MILLIGRAM, QD
     Route: 048
     Dates: start: 20201231, end: 20210128
  21. BRINTELLIX [Suspect]
     Active Substance: VORTIOXETINE HYDROBROMIDE
     Dosage: 20 MILLIGRAM, QD
     Route: 048
     Dates: start: 20220930
  22. LORMETAZEPAM [Suspect]
     Active Substance: LORMETAZEPAM
     Indication: Product used for unknown indication
     Dosage: 1 MILLIGRAM, 1 AS NECESSARY
     Route: 065
  23. GAVISCON [ALGINIC ACID;ALUMINIUM HYDROXIDE;MAGNESIUM TRISILICATE;SODIU [Concomitant]
     Indication: Product used for unknown indication
     Dosage: 2 DOSAGE FORM, 1 AS NECESSARY
     Route: 065

REACTIONS (1)
  - Sudden death [Fatal]

NARRATIVE: CASE EVENT DATE: 20230602
